FAERS Safety Report 8978902 (Version 2)
Quarter: 2013Q1

REPORT INFORMATION
  Report Type: Spontaneous
  Country: IN (occurrence: IN)
  Receive Date: 20121221
  Receipt Date: 20130226
  Transmission Date: 20140127
  Serious: Yes (Other)
  Sender: FDA-Public Use
  Company Number: PHHY2012IN117065

PATIENT
  Age: 29 Year
  Sex: Female

DRUGS (8)
  1. TACROLIMUS [Suspect]
     Indication: RENAL TRANSPLANT
  2. NIFEDIPINE [Suspect]
     Indication: HYPERTENSION
     Dosage: 20 MG, TID
  3. PREDNISOLONE [Suspect]
     Indication: RENAL TRANSPLANT
  4. PANTOPRAZOLE [Suspect]
     Dosage: 40 MG, UNK
     Route: 042
  5. RANITIDINE [Suspect]
  6. ONDANSETRON [Suspect]
     Dosage: 4 MG, UNK
     Route: 042
  7. GLYCERYL TRINITRATE [Suspect]
  8. BUPIVACAINE [Suspect]
     Dosage: 2.2 ML, UNK
     Route: 037

REACTIONS (3)
  - Prolonged labour [Recovered/Resolved]
  - Blood pressure increased [Unknown]
  - Maternal exposure during pregnancy [Unknown]
